FAERS Safety Report 8427805-4 (Version None)
Quarter: 2012Q2

REPORT INFORMATION
  Report Type: 
  Country: None (occurrence: None)
  Receive Date: 20120611
  Receipt Date: 20120607
  Transmission Date: 20120825
  Serious: Yes (Hospitalization, Other)
  Sender: FDA-Public Use
  Company Number: FR-PFIZER INC-2012136723

PATIENT
  Age: 87 Year
  Sex: Female

DRUGS (8)
  1. PRAZEPAM [Suspect]
     Indication: ANXIETY
     Dosage: 20 MG, 2X/DAY
     Route: 048
     Dates: start: 20110101
  2. ZOLPIDEM [Suspect]
     Indication: INSOMNIA
     Dosage: 10 MG, 1X/DAY
     Route: 048
     Dates: start: 20110101
  3. MIANSERIN HYDROCHLORIDE [Suspect]
     Indication: DEPRESSION
     Dosage: 30 MG, 2X/DAY
     Route: 048
     Dates: start: 20030101
  4. COZAAR [Suspect]
     Indication: HYPERTENSION
     Dosage: 50 MG, 1X/DAY
     Route: 048
     Dates: start: 20110101
  5. PANTOPRAZOLE [Concomitant]
     Dosage: 40 MG, UNK
     Route: 048
  6. ZOLOFT [Suspect]
     Indication: DEPRESSION
     Dosage: 50 MG, 3X/DAY
     Route: 048
     Dates: start: 20030101
  7. FENOFIBRATE [Concomitant]
     Route: 048
  8. ASPIRIN [Concomitant]
     Dosage: 75 MG, UNK
     Route: 048

REACTIONS (7)
  - COGNITIVE DISORDER [None]
  - BLOOD CREATINE PHOSPHOKINASE INCREASED [None]
  - LOSS OF CONSCIOUSNESS [None]
  - FALL [None]
  - ATRIOVENTRICULAR BLOCK SECOND DEGREE [None]
  - BRAIN NATRIURETIC PEPTIDE INCREASED [None]
  - MYOGLOBIN BLOOD INCREASED [None]
